FAERS Safety Report 13941705 (Version 3)
Quarter: 2018Q2

REPORT INFORMATION
  Report Type: Spontaneous
  Country: US (occurrence: US)
  Receive Date: 20170906
  Receipt Date: 20180423
  Transmission Date: 20180711
  Serious: Yes (Death)
  Sender: FDA-Public Use
  Company Number: US-PTC THERAPEUTICS, INC.-US-2017PTC000060

PATIENT

DRUGS (1)
  1. EMFLAZA [Suspect]
     Active Substance: DEFLAZACORT
     Indication: DUCHENNE MUSCULAR DYSTROPHY
     Dosage: 54 MG, QD
     Route: 048
     Dates: start: 20171003, end: 20180410

REACTIONS (2)
  - Death [Fatal]
  - Nonspecific reaction [Unknown]

NARRATIVE: CASE EVENT DATE: 20170724
